FAERS Safety Report 15457522 (Version 1)
Quarter: 2018Q4

REPORT INFORMATION
  Report Type: Spontaneous
  Country: US (occurrence: US)
  Receive Date: 20181003
  Receipt Date: 20181003
  Transmission Date: 20190204
  Serious: No
  Sender: FDA-Public Use
  Company Number: US-UNITED THERAPEUTICS-UNT-2018-015193

PATIENT
  Sex: Female
  Weight: 96.15 kg

DRUGS (4)
  1. TYVASO [Suspect]
     Active Substance: TREPROSTINIL
     Indication: PULMONARY ARTERIAL HYPERTENSION
     Dosage: 60-120 MICROGRAMS, QID
     Dates: start: 20170605
  2. ADCIRCA [Concomitant]
     Active Substance: TADALAFIL
     Indication: PRODUCT USED FOR UNKNOWN INDICATION
     Route: 065
  3. LETAIRIS [Suspect]
     Active Substance: AMBRISENTAN
     Indication: PRODUCT USED FOR UNKNOWN INDICATION
     Dosage: 10 MG, QD
     Route: 065
     Dates: start: 20160118
  4. TYVASO [Suspect]
     Active Substance: TREPROSTINIL
     Dosage: 90-108 MICROGRAMS, QID

REACTIONS (4)
  - Dry mouth [Recovered/Resolved]
  - Off label use [Not Recovered/Not Resolved]
  - Salivary hypersecretion [Recovered/Resolved]
  - Headache [Recovered/Resolved]
